FAERS Safety Report 25909201 (Version 1)
Quarter: 2025Q4

REPORT INFORMATION
  Report Type: Spontaneous
  Country: EU (occurrence: EU)
  Receive Date: 20251011
  Receipt Date: 20251011
  Transmission Date: 20260119
  Serious: Yes (Other)
  Sender: VIIV
  Company Number: EU-GSK-B0626630A

PATIENT
  Age: 31 Year
  Sex: Male

DRUGS (8)
  1. LAMIVUDINE [Interacting]
     Active Substance: LAMIVUDINE
     Indication: Immunosuppression
     Dosage: 100 MG, 1D
     Route: 065
  2. LAMIVUDINE [Interacting]
     Active Substance: LAMIVUDINE
     Indication: Hepatitis B reactivation
  3. METHYLPREDNISOLONE [Concomitant]
     Active Substance: METHYLPREDNISOLONE
     Indication: Product used for unknown indication
     Dosage: 250 MG, BID
  4. CYCLOSPORINE [Interacting]
     Active Substance: CYCLOSPORINE
     Indication: Immunosuppressant drug therapy
     Dosage: 50 MG, BID
     Route: 065
  5. CYCLOSPORINE [Interacting]
     Active Substance: CYCLOSPORINE
     Dosage: 150 MG, BID
     Route: 065
  6. CYCLOSPORINE [Interacting]
     Active Substance: CYCLOSPORINE
     Dosage: 100 MG, BID
     Route: 065
  7. MYCOPHENOLATE MOFETIL [Concomitant]
     Active Substance: MYCOPHENOLATE MOFETIL
     Indication: Immunosuppressant drug therapy
     Dosage: 250 MG, BID
     Route: 065
  8. PREDNISONE [Concomitant]
     Active Substance: PREDNISONE
     Indication: Immunosuppressant drug therapy
     Dosage: 5 MG, 1D
     Route: 065

REACTIONS (7)
  - Hepatitis B reactivation [Recovered/Resolved]
  - Transaminases increased [Recovered/Resolved]
  - Kidney transplant rejection [Recovered/Resolved]
  - Blood creatinine increased [Recovered/Resolved]
  - Urine output decreased [Recovered/Resolved]
  - Blood albumin increased [Recovered/Resolved]
  - Drug interaction [Unknown]
